FAERS Safety Report 7479243-9 (Version None)
Quarter: 2011Q2

REPORT INFORMATION
  Report Type: 
  Country: None (occurrence: None)
  Receive Date: 20110513
  Receipt Date: 20110428
  Transmission Date: 20111010
  Serious: Yes (Death, Life-Threatening)
  Sender: FDA-Public Use
  Company Number: B0718286A

PATIENT
  Sex: Female
  Weight: 52 kg

DRUGS (11)
  1. HYDROCORTONE [Suspect]
     Dosage: 300MG PER DAY
     Route: 042
     Dates: start: 20090211, end: 20090221
  2. DEXAMETHASONE [Suspect]
     Dosage: 16.5MG PER DAY
     Route: 042
     Dates: start: 20090209, end: 20090308
  3. FLUDARABINE PHOSPHATE [Concomitant]
     Indication: STEM CELL TRANSPLANT
     Dosage: 50MG PER DAY
     Route: 065
     Dates: start: 20090207, end: 20090210
  4. VICCLOX [Concomitant]
     Dosage: 500MG PER DAY
     Route: 042
     Dates: start: 20090205, end: 20090319
  5. TACROLIMUS [Concomitant]
     Indication: IMMUNOSUPPRESSION
     Dosage: 1MG PER DAY
     Route: 065
     Dates: start: 20090210, end: 20090407
  6. ALKERAN [Suspect]
     Indication: STEM CELL TRANSPLANT
     Dosage: 100MG PER DAY
     Route: 042
     Dates: start: 20090209, end: 20090210
  7. METHOTREXATE [Concomitant]
     Indication: IMMUNOSUPPRESSION
     Dosage: 7.5MG PER DAY
     Route: 065
     Dates: start: 20090213, end: 20090218
  8. FUNGUARD [Concomitant]
     Dosage: 75MG PER DAY
     Route: 042
     Dates: start: 20090105, end: 20090406
  9. FUROSEMIDE [Suspect]
     Dosage: 60MG PER DAY
     Route: 042
     Dates: start: 20090206, end: 20090327
  10. ASPARA K [Concomitant]
     Dosage: 30MEQ PER DAY
     Route: 042
     Dates: start: 20090210, end: 20090402
  11. DIAMOX [Concomitant]
     Dosage: 1500MG PER DAY
     Route: 042
     Dates: start: 20090105, end: 20090407

REACTIONS (2)
  - HAEMORRHAGE INTRACRANIAL [None]
  - HISTIOCYTOSIS HAEMATOPHAGIC [None]
